FAERS Safety Report 23108212 (Version 1)
Quarter: 2023Q4

REPORT INFORMATION
  Report Type: Spontaneous
  Country: US (occurrence: US)
  Receive Date: 20231026
  Receipt Date: 20231026
  Transmission Date: 20240109
  Serious: Yes (Other)
  Sender: FDA-Public Use
  Company Number: US-Shilpa Medicare Limited-SML-US-2023-01452

PATIENT
  Age: 46 Year
  Sex: Female

DRUGS (2)
  1. AZACITIDINE [Suspect]
     Active Substance: AZACITIDINE
     Indication: Chloroma
     Route: 065
  2. VENETOCLAX [Suspect]
     Active Substance: VENETOCLAX
     Indication: Chloroma
     Route: 065

REACTIONS (2)
  - Disease progression [Unknown]
  - Drug ineffective [Unknown]
